FAERS Safety Report 16003074 (Version 1)
Quarter: 2019Q1

REPORT INFORMATION
  Report Type: Spontaneous
  Country: US (occurrence: US)
  Receive Date: 20190225
  Receipt Date: 20190225
  Transmission Date: 20190418
  Serious: Yes (Other)
  Sender: FDA-Public Use
  Company Number: US-AMGEN INC.-USASP2019028761

PATIENT
  Age: 53 Year
  Sex: Female

DRUGS (2)
  1. DOXEPIN [Concomitant]
     Active Substance: DOXEPIN
     Indication: SLEEP DISORDER
     Dosage: UNK, IN THE FORM OF DROPS AT NIGHT
  2. AIMOVIG [Suspect]
     Active Substance: ERENUMAB-AOOE
     Indication: PRODUCT USED FOR UNKNOWN INDICATION
     Dosage: 70 MG, UNK
     Route: 065
     Dates: start: 20181227, end: 20190127

REACTIONS (7)
  - Balance disorder [Unknown]
  - Dyspnoea [Unknown]
  - Incoherent [Unknown]
  - Hypersomnia [Unknown]
  - Confusional state [Unknown]
  - Muscular weakness [Unknown]
  - Fall [Unknown]
